FAERS Safety Report 7022994-0 (Version None)
Quarter: 2010Q3

REPORT INFORMATION
  Report Type: 
  Country: None (occurrence: None)
  Receive Date: 20100930
  Receipt Date: 20100818
  Transmission Date: 20110219
  Serious: Yes (Death, Other)
  Sender: FDA-Public Use
  Company Number: US-BAXTER-2009BH002532

PATIENT
  Age: 82 Year
  Sex: Male
  Weight: 109 kg

DRUGS (29)
  1. HEPARIN SODIUM INJECTION [Suspect]
     Indication: CATHETERISATION CARDIAC
     Route: 065
     Dates: start: 20071206, end: 20071206
  2. HEPARIN SODIUM INJECTION [Suspect]
     Indication: CARDIAC OPERATION
     Route: 065
     Dates: start: 20071206, end: 20071206
  3. HEPARIN SODIUM INJECTION [Suspect]
     Indication: THROMBOSIS PROPHYLAXIS
     Route: 065
     Dates: start: 20071206, end: 20071206
  4. HEPARIN SODIUM INJECTION [Suspect]
     Route: 065
     Dates: start: 20071206, end: 20071206
  5. HEPARIN SODIUM INJECTION [Suspect]
     Route: 065
     Dates: start: 20071206, end: 20071206
  6. HEPARIN SODIUM INJECTION [Suspect]
     Route: 065
     Dates: start: 20071206, end: 20071206
  7. HEPARIN SODIUM INJECTION [Suspect]
     Route: 058
     Dates: start: 20080104, end: 20080214
  8. HEPARIN SODIUM INJECTION [Suspect]
     Route: 058
     Dates: start: 20080104, end: 20080214
  9. HEPARIN SODIUM INJECTION [Suspect]
     Route: 058
     Dates: start: 20080104, end: 20080214
  10. HEPARIN SODIUM INJECTION [Suspect]
     Route: 065
     Dates: start: 20071206, end: 20071206
  11. HEPARIN SODIUM INJECTION [Suspect]
     Route: 065
     Dates: start: 20071206, end: 20071206
  12. HEPARIN SODIUM INJECTION [Suspect]
     Route: 065
     Dates: start: 20071206, end: 20071206
  13. HEPARIN SODIUM INJECTION [Suspect]
     Route: 058
     Dates: start: 20080217, end: 20080220
  14. HEPARIN SODIUM INJECTION [Suspect]
     Route: 058
     Dates: start: 20080217, end: 20080220
  15. HEPARIN SODIUM INJECTION [Suspect]
     Route: 058
     Dates: start: 20080217, end: 20080220
  16. HEPARIN SODIUM INJECTION [Suspect]
     Route: 065
     Dates: start: 20071206, end: 20071206
  17. HEPARIN SODIUM INJECTION [Suspect]
     Route: 065
     Dates: start: 20071206, end: 20071206
  18. HEPARIN SODIUM INJECTION [Suspect]
     Route: 065
     Dates: start: 20071206, end: 20071206
  19. HEPARIN SODIUM INJECTION [Suspect]
     Route: 065
     Dates: start: 20071201, end: 20080201
  20. HEPARIN SODIUM INJECTION [Suspect]
     Route: 065
     Dates: start: 20071201, end: 20080201
  21. HEPARIN SODIUM INJECTION [Suspect]
     Route: 065
     Dates: start: 20071201, end: 20080201
  22. HEPARIN SODIUM INJECTION [Suspect]
     Route: 065
     Dates: start: 20080108, end: 20080108
  23. HEPARIN SODIUM INJECTION [Suspect]
     Route: 065
     Dates: start: 20080108, end: 20080108
  24. HEPARIN SODIUM INJECTION [Suspect]
     Route: 065
     Dates: start: 20080108, end: 20080108
  25. HEPARIN SODIUM [Suspect]
     Indication: CATHETERISATION CARDIAC
     Route: 065
     Dates: start: 20071206, end: 20071206
  26. ATORVASTATIN CALCIUM [Concomitant]
     Indication: PRODUCT USED FOR UNKNOWN INDICATION
     Route: 065
  27. FOLIC ACID [Concomitant]
     Indication: PRODUCT USED FOR UNKNOWN INDICATION
     Route: 065
  28. ASPIRIN [Concomitant]
     Indication: PRODUCT USED FOR UNKNOWN INDICATION
     Route: 065
  29. VANCOMYCIN [Concomitant]
     Indication: PRODUCT USED FOR UNKNOWN INDICATION
     Route: 042

REACTIONS (26)
  - BLOOD PRESSURE DECREASED [None]
  - CARDIAC ARREST [None]
  - CARDIO-RESPIRATORY ARREST [None]
  - CARDIOGENIC SHOCK [None]
  - CIRCULATORY COLLAPSE [None]
  - CORONARY ARTERY DISEASE [None]
  - ENCEPHALOPATHY [None]
  - GASTRIC DISORDER [None]
  - GASTRITIS [None]
  - GASTROINTESTINAL NECROSIS [None]
  - HAEMATEMESIS [None]
  - HYPOXIA [None]
  - ISCHAEMIC HEPATITIS [None]
  - LACTIC ACIDOSIS [None]
  - LEUKOCYTOSIS [None]
  - MULTI-ORGAN FAILURE [None]
  - MYOCARDIAL INFARCTION [None]
  - MYOPATHY [None]
  - PEPTIC ULCER [None]
  - PNEUMONIA [None]
  - PNEUMONIA HERPES VIRAL [None]
  - POSTOPERATIVE THORACIC PROCEDURE COMPLICATION [None]
  - RESPIRATORY FAILURE [None]
  - SEPSIS [None]
  - SHOCK [None]
  - WOUND INFECTION [None]
